FAERS Safety Report 11664650 (Version 1)
Quarter: 2015Q4

REPORT INFORMATION
  Report Type: Spontaneous
  Country: US (occurrence: US)
  Receive Date: 20151027
  Receipt Date: 20151027
  Transmission Date: 20160304
  Serious: No
  Sender: FDA-Public Use
  Company Number: US-ELI_LILLY_AND_COMPANY-US200912000749

PATIENT
  Sex: Female

DRUGS (2)
  1. VITAMIN D [Concomitant]
     Active Substance: CHOLECALCIFEROL
     Dosage: 50000 U, WEEKLY (1/W)
  2. FORTEO [Suspect]
     Active Substance: TERIPARATIDE
     Dates: start: 200901, end: 200911

REACTIONS (8)
  - Tremor [Recovering/Resolving]
  - Dizziness [Recovering/Resolving]
  - Depression [Recovering/Resolving]
  - Confusional state [Recovering/Resolving]
  - Dyspnoea [Unknown]
  - Anxiety [Recovering/Resolving]
  - Gait disturbance [Recovering/Resolving]
  - Decreased appetite [Recovering/Resolving]

NARRATIVE: CASE EVENT DATE: 2009
